FAERS Safety Report 10036561 (Version 4)
Quarter: 2014Q4

REPORT INFORMATION
  Report Type: Report from Study
  Country: US (occurrence: US)
  Receive Date: 20140326
  Receipt Date: 20141010
  Transmission Date: 20150528
  Serious: Yes (Hospitalization)
  Sender: FDA-Public Use
  Company Number: US-BIOGENIDEC-2014BI026509

PATIENT
  Age: 63 Year
  Sex: Female

DRUGS (6)
  1. TYSABRI [Suspect]
     Active Substance: NATALIZUMAB
     Indication: MULTIPLE SCLEROSIS
     Route: 042
     Dates: start: 201403
  2. DILTIAZEM [Concomitant]
     Active Substance: DILTIAZEM
  3. FUROSEMIDE. [Concomitant]
     Active Substance: FUROSEMIDE
  4. TYSABRI [Suspect]
     Active Substance: NATALIZUMAB
     Indication: MULTIPLE SCLEROSIS
     Route: 042
     Dates: start: 201312
  5. FLECAINIDE [Concomitant]
     Active Substance: FLECAINIDE
  6. TYSABRI [Suspect]
     Active Substance: NATALIZUMAB
     Indication: MULTIPLE SCLEROSIS
     Route: 042
     Dates: start: 20060722

REACTIONS (8)
  - Urinary tract infection [Not Recovered/Not Resolved]
  - Deep vein thrombosis [Unknown]
  - Bradycardia [Recovered/Resolved]
  - Pneumonia [Not Recovered/Not Resolved]
  - Mental status changes [Recovered/Resolved]
  - Acute prerenal failure [Recovered/Resolved]
  - Hypotension [Recovered/Resolved]
  - Acute respiratory distress syndrome [Unknown]

NARRATIVE: CASE EVENT DATE: 201312
